FAERS Safety Report 7083497-0 (Version None)
Quarter: 2010Q4

REPORT INFORMATION
  Report Type: 
  Country: None (occurrence: None)
  Receive Date: 20101027
  Receipt Date: 20101005
  Transmission Date: 20110411
  Serious: Yes (Life-Threatening, Hospitalization, Disabling)
  Sender: FDA-Public Use
  Company Number: SE-021293

PATIENT
  Age: 74 Year
  Sex: Female

DRUGS (1)
  1. (CHLORAMBUCIL) [Suspect]
     Dosage: TABLET ORAL
     Route: 048
     Dates: start: 20100407, end: 20100711

REACTIONS (1)
  - PANCREATIC NEOPLASM [None]
